FAERS Safety Report 9824758 (Version 1)
Quarter: 2014Q1

REPORT INFORMATION
  Report Type: Spontaneous
  Country: GB (occurrence: GB)
  Receive Date: 20140117
  Receipt Date: 20140117
  Transmission Date: 20141002
  Serious: Yes (Hospitalization)
  Sender: FDA-Public Use
  Company Number: GB-ACCORD-021261

PATIENT
  Age: 64 Year
  Sex: Female
  Weight: 93 kg

DRUGS (7)
  1. NICORANDIL [Concomitant]
  2. SALBUTAMOL [Concomitant]
  3. OMEPRAZOLE [Concomitant]
  4. AMLODIPINE [Suspect]
     Indication: HYPERTENSION
     Route: 048
  5. ATORVASTATIN [Concomitant]
  6. SERETIDE [Concomitant]
  7. ASPIRIN [Concomitant]

REACTIONS (1)
  - Urosepsis [Recovered/Resolved]
